FAERS Safety Report 9552252 (Version 2)
Quarter: 2013Q4

REPORT INFORMATION
  Report Type: Spontaneous
  Country: US (occurrence: None)
  Receive Date: 20130923
  Receipt Date: 20131015
  Transmission Date: 20140711
  Serious: Yes (Hospitalization)
  Sender: FDA-Public Use
  Company Number: 2013-1491

PATIENT
  Age: 53 Year
  Sex: Female

DRUGS (22)
  1. KYPROLIS [Suspect]
     Indication: PLASMA CELL MYELOMA
     Route: 042
     Dates: start: 20130613
  2. CYCLOBENZAPRINE (CYCLOBENZAPRINE) (CYCLOBENZAPRINE) [Concomitant]
  3. VITAMIN D2 (ERGOCALCIFEROL) (ERGOCALCIFEROL) [Concomitant]
  4. LASIX (FUROSEMIDE) (FUROSEMIDE) [Concomitant]
  5. PROCHOLORPERAZINE (PROCHLORPERAZINE) (PROCHLORPERAZINE) [Concomitant]
  6. POTASSIUM (POTASSIUM) (POTASSIUM) [Concomitant]
  7. PRISTIQ (DESVENLAFAXINE SUCCINATE) (DESVENLAFAXINE SUCCINATE) [Concomitant]
  8. PREDNISONE (PREDNISONE) (PREDNISONE) [Concomitant]
  9. SEROQUEL (QUETIAPINE FUMARATE) (QUETIAPINE FUMARATE) [Concomitant]
  10. DEXILANT (DEXLANSOPRAZOLE) (DEXLANSOPRAZOLE) [Concomitant]
  11. ACYCLOVIR (ACICLOVIR) (ACICLOVIR) [Concomitant]
  12. SENNA (SENNA ALEXANDRINA) (SENNA ALEXANDRINA) [Concomitant]
  13. MIRALAX (MACROGOL) (MACROGOL) [Concomitant]
  14. CLONAZEPAM (CLONAZEPAM) (CLONAZEPAM) [Concomitant]
  15. TRAZODONE (TRAZODONE) (TRAZODONE) [Concomitant]
  16. OXYCODONE (OXYCODONE) (OXYCODONE) [Concomitant]
  17. GABAPENTIN (GABAPENTIN) [Concomitant]
  18. LIBRAX (CHLORDIAZEPOXIDE HYDROCHLORIDE, CLIDINIUM BROMIDE) [Concomitant]
  19. PROAIR (SALBUTAMOL SULFATE) [Concomitant]
  20. ADVAIR (FLUTICASONE PROPIONATE, SALMETEROL XINAFOATE) [Concomitant]
  21. FENTANYL PATCHES (FENTANYL CITRATE) [Concomitant]
  22. LIDOCAINE PATCHES (LIDOCAINE HYDROCHLORIDE) [Concomitant]

REACTIONS (17)
  - Headache [None]
  - Platelet count decreased [None]
  - Haemoglobin decreased [None]
  - Lethargy [None]
  - Sleep attacks [None]
  - White blood cell count decreased [None]
  - Clostridium difficile infection [None]
  - Staphylococcal infection [None]
  - Nausea [None]
  - Hypotension [None]
  - Drug withdrawal syndrome [None]
  - Road traffic accident [None]
  - Dyspnoea [None]
  - Self-medication [None]
  - Abdominal distension [None]
  - Condition aggravated [None]
  - Constipation [None]
